FAERS Safety Report 7912525-2 (Version None)
Quarter: 2011Q4

REPORT INFORMATION
  Report Type: 
  Country: None (occurrence: None)
  Receive Date: 20111114
  Receipt Date: 20111104
  Transmission Date: 20120403
  Serious: No
  Sender: FDA-Public Use
  Company Number: US-PFIZER INC-2011270922

PATIENT
  Sex: Female

DRUGS (1)
  1. FLECTOR [Suspect]
     Indication: ORAL DISORDER
     Dosage: UNK
     Route: 062

REACTIONS (2)
  - NASAL DISORDER [None]
  - SKIN DISCOLOURATION [None]
